FAERS Safety Report 25286915 (Version 1)
Quarter: 2025Q2

REPORT INFORMATION
  Report Type: Spontaneous
  Country: US (occurrence: None)
  Receive Date: 20250508
  Receipt Date: 20250508
  Transmission Date: 20250717
  Serious: Yes (Hospitalization)
  Sender: FDA-CTU
  Company Number: None

PATIENT
  Sex: Male

DRUGS (2)
  1. DEFERASIROX [Suspect]
     Active Substance: DEFERASIROX
     Indication: Sickle cell disease
     Dosage: 1000 MG DAILY ORAL
     Route: 048
     Dates: start: 20200506
  2. ENDARI [Suspect]
     Active Substance: GLUTAMINE

REACTIONS (3)
  - Sickle cell anaemia with crisis [None]
  - Treatment noncompliance [None]
  - Incorrect dose administered [None]
